FAERS Safety Report 10255550 (Version 1)
Quarter: 2014Q2

REPORT INFORMATION
  Report Type: Spontaneous
  Country: US (occurrence: US)
  Receive Date: 20140624
  Receipt Date: 20140624
  Transmission Date: 20141212
  Serious: Yes (Hospitalization, Other)
  Sender: FDA-Public Use
  Company Number: CHPA2014US008390

PATIENT
  Age: 80 Year
  Sex: Male

DRUGS (1)
  1. DESENEX [Suspect]
     Indication: TINEA PEDIS
     Dosage: 1 DF, UNK
     Route: 061

REACTIONS (12)
  - Rectal haemorrhage [Recovered/Resolved]
  - Bladder cancer [Unknown]
  - Cystitis [Unknown]
  - Calculus bladder [Unknown]
  - Prostatomegaly [Unknown]
  - Dysuria [Unknown]
  - Pollakiuria [Not Recovered/Not Resolved]
  - Diarrhoea [Unknown]
  - Constipation [Unknown]
  - Incorrect drug administration duration [Unknown]
  - Expired product administered [Unknown]
  - Incorrect dose administered [Unknown]
